FAERS Safety Report 22355586 (Version 1)
Quarter: 2023Q2

REPORT INFORMATION
  Report Type: Spontaneous
  Country: ES (occurrence: ES)
  Receive Date: 20230523
  Receipt Date: 20230523
  Transmission Date: 20230722
  Serious: Yes (Congenital Anomaly, Other)
  Sender: FDA-Public Use
  Company Number: ES-UCBSA-2023025980

PATIENT
  Sex: Male

DRUGS (6)
  1. VIMPAT [Suspect]
     Active Substance: LACOSAMIDE
     Indication: Partial seizures
     Dosage: 150-100-150
     Route: 064
  2. VIMPAT [Suspect]
     Active Substance: LACOSAMIDE
     Dosage: 150 MG/12 H
     Route: 064
  3. BRIVIACT [Suspect]
     Active Substance: BRIVARACETAM
     Indication: Partial seizures
     Dosage: 50/12 H TO 75/12 H
     Route: 064
     Dates: start: 2022
  4. BRIVIACT [Suspect]
     Active Substance: BRIVARACETAM
     Dosage: 100-0-100
     Route: 064
  5. BRIVIACT [Suspect]
     Active Substance: BRIVARACETAM
     Dosage: 50 MG/12 H
     Route: 064
     Dates: end: 2022
  6. KEPPRA [Suspect]
     Active Substance: LEVETIRACETAM
     Indication: Product used for unknown indication
     Dosage: UNK
     Route: 064

REACTIONS (4)
  - Premature baby [Unknown]
  - Hearing disability [Unknown]
  - Maternal exposure during pregnancy [Unknown]
  - Maternal exposure before pregnancy [Unknown]

NARRATIVE: CASE EVENT DATE: 20230101
